FAERS Safety Report 14543643 (Version 3)
Quarter: 2018Q2

REPORT INFORMATION
  Report Type: Spontaneous
  Country: US (occurrence: US)
  Receive Date: 20180216
  Receipt Date: 20180402
  Transmission Date: 20180711
  Serious: Yes (Hospitalization)
  Sender: FDA-Public Use
  Company Number: US-VIFOR (INTERNATIONAL) INC.-VIT-2018-01561

PATIENT
  Age: 68 Year
  Sex: Female
  Weight: 90.8 kg

DRUGS (14)
  1. LANTUS [Concomitant]
     Active Substance: INSULIN GLARGINE
  2. LEVOTHYROXINE SODIUM. [Concomitant]
     Active Substance: LEVOTHYROXINE SODIUM
  3. METOPROLOL TARTRATE. [Concomitant]
     Active Substance: METOPROLOL TARTRATE
  4. NOVOLOG [Concomitant]
     Active Substance: INSULIN ASPART
  5. CARDURA [Concomitant]
     Active Substance: DOXAZOSIN MESYLATE
  6. PROCRIT [Concomitant]
     Active Substance: ERYTHROPOIETIN
  7. ACETYLSALICYLIC ACID [Concomitant]
     Active Substance: ASPIRIN
  8. VELTASSA [Suspect]
     Active Substance: PATIROMER
     Indication: HYPERKALAEMIA
     Route: 048
     Dates: start: 20161216
  9. VITAMIN B12 [Concomitant]
     Active Substance: CYANOCOBALAMIN
  10. COLESTIPOL HYDROCHLORIDE. [Concomitant]
     Active Substance: COLESTIPOL HYDROCHLORIDE
  11. CALCIUM [Concomitant]
     Active Substance: CALCIUM
  12. SODIUM ALGINATE [Concomitant]
     Active Substance: SODIUM ALGINATE
  13. TUMS FRESHERS [Concomitant]
     Active Substance: CALCIUM CARBONATE
  14. LOSARTAN POTASSIUM. [Concomitant]
     Active Substance: LOSARTAN POTASSIUM

REACTIONS (8)
  - Nephrolithiasis [Unknown]
  - Pericardial effusion [Unknown]
  - Dialysis [Unknown]
  - Drug dose omission [Unknown]
  - Nasopharyngitis [Unknown]
  - Off label use [Unknown]
  - Blood phosphorus increased [Unknown]
  - Blood potassium increased [Unknown]

NARRATIVE: CASE EVENT DATE: 20161216
